FAERS Safety Report 4939292-9 (Version None)
Quarter: 2006Q1

REPORT INFORMATION
  Report Type: 
  Country: None (occurrence: None)
  Receive Date: 20060310
  Receipt Date: 20060302
  Transmission Date: 20060701
  Serious: Yes (Hospitalization)
  Sender: FDA-Public Use
  Company Number: 2006SE01274

PATIENT
  Age: 70 Year
  Sex: Female

DRUGS (9)
  1. BLOPRESS [Suspect]
     Indication: HYPERTENSION
     Route: 048
     Dates: start: 20050513, end: 20060115
  2. NORVASC [Suspect]
     Route: 048
  3. SIGMART [Suspect]
     Route: 048
  4. ASPIRIN [Suspect]
     Route: 048
  5. MUCOSTA [Suspect]
     Route: 048
  6. ISOSORBIDE MONONITRATE [Concomitant]
     Route: 048
  7. LIPIDIL [Concomitant]
     Route: 048
  8. NITROPEN [Concomitant]
     Route: 048
  9. FRANDOL S [Concomitant]
     Route: 062

REACTIONS (1)
  - INTERSTITIAL LUNG DISEASE [None]
